FAERS Safety Report 10520649 (Version 1)
Quarter: 2014Q4

REPORT INFORMATION
  Report Type: Report from Study
  Country: US (occurrence: US)
  Receive Date: 20141015
  Receipt Date: 20141015
  Transmission Date: 20150528
  Serious: No
  Sender: FDA-Public Use
  Company Number: US-ALEXION-A201102439

PATIENT

DRUGS (1)
  1. SOLIRIS [Suspect]
     Active Substance: ECULIZUMAB
     Indication: PAROXYSMAL NOCTURNAL HAEMOGLOBINURIA
     Dosage: UNK
     Route: 042

REACTIONS (8)
  - Musculoskeletal stiffness [Unknown]
  - Muscle spasms [Unknown]
  - Epistaxis [Unknown]
  - Nausea [Unknown]
  - Abdominal pain upper [Unknown]
  - Headache [Unknown]
  - Paraesthesia [Unknown]
  - Hypoaesthesia [Unknown]
